FAERS Safety Report 23331165 (Version 1)
Quarter: 2023Q4

REPORT INFORMATION
  Report Type: Spontaneous
  Country: US (occurrence: None)
  Receive Date: 20231221
  Receipt Date: 20231221
  Transmission Date: 20240110
  Serious: Yes (Hospitalization)
  Sender: FDA-Public Use
  Company Number: None

PATIENT
  Sex: Female

DRUGS (1)
  1. NYVEPRIA [Suspect]
     Active Substance: PEGFILGRASTIM-APGF
     Indication: Cholangiocarcinoma
     Dosage: 5MG SUBQ ??INJECT 1 SYRINGE UNDER THE SKIN EVERY 14 DAYS ON DAY 2 OF EACH CHEMO CYCLE. ?
     Route: 058
     Dates: start: 202308

REACTIONS (2)
  - Pyrexia [None]
  - Infection [None]
